FAERS Safety Report 7326426-4 (Version None)
Quarter: 2011Q1

REPORT INFORMATION
  Report Type: 
  Country: None (occurrence: None)
  Receive Date: 20110302
  Receipt Date: 20110218
  Transmission Date: 20110831
  Serious: Yes (Life-Threatening, Hospitalization, Other)
  Sender: FDA-Public Use
  Company Number: US-ELI_LILLY_AND_COMPANY-US201102005580

PATIENT
  Age: 60 Year
  Sex: Female

DRUGS (2)
  1. EFFIENT [Suspect]
  2. ANGIOMAX [Concomitant]

REACTIONS (4)
  - VASCULAR GRAFT [None]
  - ACUTE MYOCARDIAL INFARCTION [None]
  - HAEMORRHAGE [None]
  - TRANSFUSION [None]
